FAERS Safety Report 21054554 (Version 3)
Quarter: 2022Q3

REPORT INFORMATION
  Report Type: Spontaneous
  Country: CH (occurrence: CH)
  Receive Date: 20220707
  Receipt Date: 20220728
  Transmission Date: 20221027
  Serious: Yes (Other)
  Sender: FDA-Public Use
  Company Number: CH-TEVA-2022-CH-2052243

PATIENT

DRUGS (1)
  1. METHOTREXATE [Suspect]
     Active Substance: METHOTREXATE
     Indication: Product used for unknown indication
     Dosage: 10 MILLIGRAM DAILY;
     Route: 065

REACTIONS (5)
  - Drug-induced liver injury [Unknown]
  - Toxicity to various agents [Unknown]
  - Pancytopenia [Unknown]
  - Gastrointestinal inflammation [Unknown]
  - Inappropriate schedule of product administration [Unknown]
